FAERS Safety Report 4405719-4 (Version None)
Quarter: 2004Q3

REPORT INFORMATION
  Report Type: 
  Country: None (occurrence: None)
  Receive Date: 20040723
  Receipt Date: 20031125
  Transmission Date: 20050211
  Serious: No
  Sender: FDA-Public Use
  Company Number: US-GLAXOSMITHKLINE-A0441092A

PATIENT
  Age: 78 Year
  Sex: Female

DRUGS (8)
  1. AVANDIA [Suspect]
     Dosage: 4MG PER DAY
     Route: 048
  2. SOTALOL HCL [Concomitant]
  3. DIOVAN [Concomitant]
  4. GLYBURIDE [Concomitant]
  5. NEXIUM [Concomitant]
  6. LIPITOR [Concomitant]
  7. EFFEXOR [Concomitant]
  8. CELEBREX [Concomitant]

REACTIONS (2)
  - PRURITUS [None]
  - SWELLING [None]
